FAERS Safety Report 12084090 (Version 5)
Quarter: 2017Q2

REPORT INFORMATION
  Report Type: Report from Study
  Country: CO (occurrence: CO)
  Receive Date: 20160217
  Receipt Date: 20170421
  Transmission Date: 20170829
  Serious: Yes (Death, Hospitalization, Other)
  Sender: FDA-Public Use
  Company Number: PHHY2016CO013868

PATIENT
  Age: 72 Year
  Sex: Male
  Weight: 47 kg

DRUGS (7)
  1. SYNTHROID [Concomitant]
     Active Substance: LEVOTHYROXINE SODIUM
     Indication: HYPOTHYROIDISM
     Dosage: 88 MG, QD
     Route: 048
  2. COLECALCIFEROL W/MAGNESIUM [Concomitant]
     Indication: PRODUCT USED FOR UNKNOWN INDICATION
     Dosage: 2000 IU, QD
     Route: 065
  3. AFINITOR [Suspect]
     Active Substance: EVEROLIMUS
     Dosage: 5 MG, QD
     Route: 048
     Dates: start: 20150317
  4. AFINITOR [Suspect]
     Active Substance: EVEROLIMUS
     Indication: NEUROENDOCRINE TUMOUR
     Dosage: 10 MG, QD
     Route: 048
     Dates: start: 20150313
  5. ASPIRIN. [Concomitant]
     Active Substance: ASPIRIN
     Indication: PRODUCT USED FOR UNKNOWN INDICATION
     Dosage: 100 MG, QD
     Route: 048
  6. LANREOTIDE [Concomitant]
     Active Substance: LANREOTIDE
     Indication: PRODUCT USED FOR UNKNOWN INDICATION
     Dosage: UNK
     Route: 065
  7. SANDOSTATIN LAR DEPOT [Suspect]
     Active Substance: OCTREOTIDE ACETATE
     Indication: NEUROENDOCRINE TUMOUR
     Dosage: 30 MG, QMO
     Route: 030
     Dates: start: 20101216, end: 20160119

REACTIONS (22)
  - Arterial disorder [Unknown]
  - Groin pain [Recovering/Resolving]
  - General physical health deterioration [Unknown]
  - Cardiac disorder [Unknown]
  - Peripheral swelling [Unknown]
  - Pneumonia [Unknown]
  - Injection site pain [Recovering/Resolving]
  - Malaise [Unknown]
  - Inflammation [Unknown]
  - Weight decreased [Unknown]
  - Bronchitis [Unknown]
  - Abdominal pain [Recovering/Resolving]
  - Fatigue [Unknown]
  - Back pain [Recovering/Resolving]
  - Abdominal pain lower [Recovering/Resolving]
  - Respiratory arrest [Fatal]
  - Depression [Unknown]
  - Irritability [Unknown]
  - Injection site discomfort [Unknown]
  - Oedema peripheral [Unknown]
  - Diarrhoea [Unknown]
  - Protein total decreased [Unknown]

NARRATIVE: CASE EVENT DATE: 201509
